FAERS Safety Report 23016012 (Version 2)
Quarter: 2023Q4

REPORT INFORMATION
  Report Type: Report from Study
  Country: CO (occurrence: CO)
  Receive Date: 20231002
  Receipt Date: 20231009
  Transmission Date: 20240109
  Serious: Yes (Hospitalization, Other)
  Sender: FDA-Public Use
  Company Number: CO-ASTELLAS-2023US025341

PATIENT
  Age: 81 Year
  Sex: Male

DRUGS (3)
  1. ENZALUTAMIDE [Suspect]
     Active Substance: ENZALUTAMIDE
     Indication: Hormone-refractory prostate cancer
     Route: 048
     Dates: start: 20230722
  2. ENZALUTAMIDE [Suspect]
     Active Substance: ENZALUTAMIDE
     Route: 048
     Dates: start: 202308
  3. ENALAPRIL [Concomitant]
     Active Substance: ENALAPRIL
     Indication: Product used for unknown indication
     Dosage: UNK UNK, UNKNOWN FREQ.
     Route: 065

REACTIONS (15)
  - Cardiac failure [Unknown]
  - Urinary tract infection bacterial [Recovering/Resolving]
  - Bacteraemia [Recovering/Resolving]
  - Urinary tract infection [Recovering/Resolving]
  - Anaemia [Recovered/Resolved]
  - Diarrhoea [Recovered/Resolved]
  - Senile dementia [Recovered/Resolved]
  - Headache [Recovered/Resolved]
  - Pain in extremity [Recovered/Resolved]
  - Discomfort [Recovered/Resolved]
  - Decreased appetite [Recovered/Resolved]
  - Tremor [Unknown]
  - Groin pain [Unknown]
  - Abnormal behaviour [Unknown]
  - Drug intolerance [Unknown]

NARRATIVE: CASE EVENT DATE: 20230701
